FAERS Safety Report 16367216 (Version 1)
Quarter: 2019Q2

REPORT INFORMATION
  Report Type: Report from Study
  Country: None (occurrence: SK)
  Receive Date: 20190529
  Receipt Date: 20190529
  Transmission Date: 20190711
  Serious: Yes (Life-Threatening, Hospitalization, Other)
  Sender: FDA-Public Use
  Company Number: SK-ABBVIE-19P-260-2793051-00

PATIENT
  Age: 72 Year
  Sex: Female

DRUGS (11)
  1. SINDRANOL [Concomitant]
     Indication: PARKINSON^S DISEASE
     Route: 048
     Dates: start: 2017
  2. PK MERZ [Concomitant]
     Active Substance: AMANTADINE SULFATE
     Indication: DYSKINESIA
  3. METAMIDAZOLE [Concomitant]
     Indication: C-REACTIVE PROTEIN INCREASED
     Route: 042
     Dates: start: 20190520
  4. RILMEX [Concomitant]
     Indication: HYPERTENSION
     Route: 048
     Dates: start: 2014
  5. PK MERZ [Concomitant]
     Active Substance: AMANTADINE SULFATE
     Indication: PARKINSON^S DISEASE
     Route: 048
     Dates: start: 2016
  6. SINDRANOL [Concomitant]
     Indication: RESTLESS LEGS SYNDROME
  7. METAMIZOLE [Concomitant]
     Active Substance: METAMIZOLE
     Indication: GASTROSTOMY
  8. CIPROFLOXACIN. [Concomitant]
     Active Substance: CIPROFLOXACIN
     Indication: GASTROSTOMY
     Route: 042
     Dates: start: 20190515
  9. METAMIZOLE [Concomitant]
     Active Substance: METAMIZOLE
     Indication: PROCEDURAL PAIN
     Route: 042
     Dates: start: 20190515
  10. DUODOPA [Suspect]
     Active Substance: CARBIDOPA\LEVODOPA
     Indication: PARKINSON^S DISEASE
     Route: 050
     Dates: start: 20190515, end: 20190521
  11. CIPROFLOXACIN. [Concomitant]
     Active Substance: CIPROFLOXACIN
     Indication: PROPHYLAXIS

REACTIONS (1)
  - Pneumoperitoneum [Not Recovered/Not Resolved]

NARRATIVE: CASE EVENT DATE: 20190521
